FAERS Safety Report 26069321 (Version 1)
Quarter: 2025Q4

REPORT INFORMATION
  Report Type: Spontaneous
  Country: US (occurrence: US)
  Receive Date: 20251120
  Receipt Date: 20251120
  Transmission Date: 20260117
  Serious: Yes (Other)
  Sender: AMNEAL
  Company Number: US-AMNEAL PHARMACEUTICALS-2025-AMRX-03146

PATIENT

DRUGS (6)
  1. CREXONT [Suspect]
     Active Substance: CARBIDOPA\LEVODOPA
     Indication: Parkinson^s disease
     Dosage: 2 CAPSULES, 4X/DAY (72/280 MG)
     Route: 048
     Dates: start: 202507
  2. CREXONT [Suspect]
     Active Substance: CARBIDOPA\LEVODOPA
     Dosage: 1 CAPSULES, 4X/DAY (72/280 MG)
     Route: 048
     Dates: start: 20250716
  3. CREXONT [Suspect]
     Active Substance: CARBIDOPA\LEVODOPA
     Dosage: (70/280 MG) 2 CAPSULES, 3 /DAY
     Route: 048
  4. CREXONT [Suspect]
     Active Substance: CARBIDOPA\LEVODOPA
     Dosage: (70/280 MG) 1 CAPSULES, 3 /DAY
     Route: 048
  5. CREXONT [Suspect]
     Active Substance: CARBIDOPA\LEVODOPA
     Dosage: (52.5/210 MG) 2 CAPSULES, 3 /DAY
     Route: 048
  6. CREXONT [Suspect]
     Active Substance: CARBIDOPA\LEVODOPA
     Dosage: (52.5/210 MG) 2 CAPSULES, 4 /DAY
     Route: 048

REACTIONS (6)
  - Hallucination [Recovered/Resolved]
  - Tremor [Recovered/Resolved]
  - Confusional state [Unknown]
  - Drug intolerance [Recovered/Resolved]
  - Therapeutic response shortened [Unknown]
  - Product use issue [Unknown]
